FAERS Safety Report 26047615 (Version 1)
Quarter: 2025Q4

REPORT INFORMATION
  Report Type: Spontaneous
  Country: EU (occurrence: EU)
  Receive Date: 20251114
  Receipt Date: 20251114
  Transmission Date: 20260117
  Serious: Yes (Other)
  Sender: MYLAN
  Company Number: EU-PFIZER INC-202500211280

PATIENT
  Age: 73 Year
  Sex: Male

DRUGS (16)
  1. ABIRATERONE [Suspect]
     Active Substance: ABIRATERONE
     Indication: Prostate cancer metastatic
     Dosage: 1000 MILLIGRAM PER DECILITRE (1000 MG/DL)
  2. ABIRATERONE [Suspect]
     Active Substance: ABIRATERONE
     Dosage: 1000 MILLIGRAM PER DECILITRE (1000 MG/DL)
     Route: 065
  3. ABIRATERONE [Suspect]
     Active Substance: ABIRATERONE
     Dosage: 1000 MILLIGRAM PER DECILITRE (1000 MG/DL)
     Route: 065
  4. ABIRATERONE [Suspect]
     Active Substance: ABIRATERONE
     Dosage: 1000 MILLIGRAM PER DECILITRE (1000 MG/DL)
  5. DOCETAXEL [Suspect]
     Active Substance: DOCETAXEL
     Indication: Prostate cancer metastatic
     Dosage: 75 MILLIGRAM/SQ. METER,6 CYCLE (75 MG/M2 (FOR 6 CYCLES))
     Dates: start: 20230117
  6. DOCETAXEL [Suspect]
     Active Substance: DOCETAXEL
     Dosage: 75 MILLIGRAM/SQ. METER,6 CYCLE (75 MG/M2 (FOR 6 CYCLES))
     Route: 065
     Dates: start: 20230117
  7. DOCETAXEL [Suspect]
     Active Substance: DOCETAXEL
     Dosage: 75 MILLIGRAM/SQ. METER,6 CYCLE (75 MG/M2 (FOR 6 CYCLES))
     Route: 065
     Dates: start: 20230117
  8. DOCETAXEL [Suspect]
     Active Substance: DOCETAXEL
     Dosage: 75 MILLIGRAM/SQ. METER,6 CYCLE (75 MG/M2 (FOR 6 CYCLES))
     Dates: start: 20230117
  9. LEUPROLIDE [Suspect]
     Active Substance: LEUPROLIDE
     Indication: Prostate cancer metastatic
     Dosage: 22.5 MILLIGRAM (22.5 MG, EVERY 6 MONTHS)
  10. LEUPROLIDE [Suspect]
     Active Substance: LEUPROLIDE
     Dosage: 22.5 MILLIGRAM (22.5 MG, EVERY 6 MONTHS)
     Route: 065
  11. LEUPROLIDE [Suspect]
     Active Substance: LEUPROLIDE
     Dosage: 22.5 MILLIGRAM (22.5 MG, EVERY 6 MONTHS)
     Route: 065
  12. LEUPROLIDE [Suspect]
     Active Substance: LEUPROLIDE
     Dosage: 22.5 MILLIGRAM (22.5 MG, EVERY 6 MONTHS)
  13. PREDNISONE [Concomitant]
     Active Substance: PREDNISONE
     Dosage: 5 MILLIGRAM PER DECILITRE (5 MG/DL  )
  14. PREDNISONE [Concomitant]
     Active Substance: PREDNISONE
     Dosage: 5 MILLIGRAM PER DECILITRE (5 MG/DL  )
     Route: 065
  15. PREDNISONE [Concomitant]
     Active Substance: PREDNISONE
     Dosage: 5 MILLIGRAM PER DECILITRE (5 MG/DL  )
     Route: 065
  16. PREDNISONE [Concomitant]
     Active Substance: PREDNISONE
     Dosage: 5 MILLIGRAM PER DECILITRE (5 MG/DL  )

REACTIONS (2)
  - Prostate cancer metastatic [Unknown]
  - Malignant neoplasm progression [Unknown]

NARRATIVE: CASE EVENT DATE: 20250701
